FAERS Safety Report 9973653 (Version 3)
Quarter: 2014Q1

REPORT INFORMATION
  Report Type: Spontaneous
  Country: JP (occurrence: JP)
  Receive Date: 20140306
  Receipt Date: 20140318
  Transmission Date: 20141002
  Serious: Yes (Hospitalization, Other)
  Sender: FDA-Public Use
  Company Number: PHHY2014JP023649

PATIENT
  Age: 41 Year
  Sex: Female
  Weight: 74 kg

DRUGS (11)
  1. HYDRALAZINE [Suspect]
     Indication: ESSENTIAL HYPERTENSION
     Route: 048
  2. METHYLDOPA [Suspect]
     Indication: ESSENTIAL HYPERTENSION
     Dosage: 500 MG, UNK
     Route: 048
  3. METHYLDOPA [Suspect]
     Dosage: 750 MG, UNK
     Route: 048
  4. METHYLDOPA [Suspect]
     Dosage: 1500 MG, UNK
     Route: 048
  5. HYDROCORTISONE [Suspect]
     Route: 048
  6. AMLODIPINE [Suspect]
     Indication: HYPERTENSION
     Dosage: 5 MG, QD
     Route: 048
  7. AMLODIPINE [Suspect]
     Dosage: 10 MG, QD
  8. TELMISARTAN [Suspect]
     Indication: HYPERTENSION
     Dosage: 40 MG, QD
     Route: 048
  9. TELMISARTAN [Suspect]
     Dosage: 80 MG, QD
  10. INSULIN [Suspect]
  11. HYDROCORTISONE SODIUM SUCCINATE [Concomitant]
     Dosage: 150 MG, UNK
     Route: 042

REACTIONS (16)
  - Blood pressure inadequately controlled [Unknown]
  - Pre-eclampsia [Unknown]
  - Heart rate increased [Unknown]
  - Multi-organ failure [Unknown]
  - Disseminated intravascular coagulation [Unknown]
  - Foetal death [Unknown]
  - Gestational diabetes [Recovered/Resolved]
  - Hepatic function abnormal [Unknown]
  - Lipids abnormal [Unknown]
  - White blood cell count increased [Unknown]
  - Anaemia [Unknown]
  - Generalised oedema [Unknown]
  - Blood albumin decreased [Unknown]
  - Pulmonary oedema [Recovering/Resolving]
  - Weight increased [Unknown]
  - Maternal exposure during pregnancy [Unknown]
